FAERS Safety Report 5832798-X (Version None)
Quarter: 2008Q3

REPORT INFORMATION
  Report Type: 
  Country: None (occurrence: None)
  Receive Date: 20080804
  Receipt Date: 20080723
  Transmission Date: 20090109
  Serious: Yes (Other)
  Sender: FDA-Public Use
  Company Number: JP-ROCHE-576915

PATIENT
  Age: 71 Year
  Sex: Female

DRUGS (1)
  1. XELODA [Suspect]
     Indication: BREAST CANCER RECURRENT
     Dosage: DRUG NAME: XELODA 300.
     Route: 048
     Dates: start: 20070701, end: 20080101

REACTIONS (2)
  - HYPOCHOLESTEROLAEMIA [None]
  - LIPIDS ABNORMAL [None]
